FAERS Safety Report 6279419-2 (Version None)
Quarter: 2009Q3

REPORT INFORMATION
  Report Type: 
  Country: None (occurrence: None)
  Receive Date: 20090723
  Receipt Date: 20090720
  Transmission Date: 20100115
  Serious: Yes (Other)
  Sender: FDA-Public Use
  Company Number: US-GENENTECH-287170

PATIENT
  Sex: Female
  Weight: 15.5 kg

DRUGS (2)
  1. SOMATROPIN [Suspect]
     Indication: HYPOTHALAMO-PITUITARY DISORDER
     Dosage: 0.6 MG, 7/WEEK
     Dates: start: 20090514, end: 20090708
  2. DDAVP [Concomitant]
     Indication: DRUG USE FOR UNKNOWN INDICATION
     Dosage: 2 PUFF, BID
     Dates: start: 20070927

REACTIONS (1)
  - HISTIOCYTOSIS [None]
